FAERS Safety Report 24424038 (Version 1)
Quarter: 2024Q4

REPORT INFORMATION
  Report Type: Spontaneous
  Country: CN (occurrence: CN)
  Receive Date: 20241010
  Receipt Date: 20241010
  Transmission Date: 20250114
  Serious: Yes (Life-Threatening)
  Sender: BAYER
  Company Number: CN-BAYER-2024A144290

PATIENT
  Age: 63 Year
  Sex: Male
  Weight: 67 kg

DRUGS (2)
  1. ULTRAVIST [Suspect]
     Active Substance: IOPROMIDE
     Indication: Computerised tomogram
     Dosage: 100 ML, ONCE
     Route: 042
     Dates: start: 20240929, end: 20240929
  2. ULTRAVIST [Suspect]
     Active Substance: IOPROMIDE
     Indication: Lung neoplasm malignant

REACTIONS (5)
  - Anaphylactic shock [Recovering/Resolving]
  - Unresponsive to stimuli [Recovered/Resolved]
  - Pallor [None]
  - Carotid pulse abnormal [None]
  - Blood pressure decreased [Recovering/Resolving]

NARRATIVE: CASE EVENT DATE: 20240929
